FAERS Safety Report 15536855 (Version 2)
Quarter: 2018Q4

REPORT INFORMATION
  Report Type: Spontaneous
  Country: NL (occurrence: NL)
  Receive Date: 20181022
  Receipt Date: 20181105
  Transmission Date: 20190205
  Serious: Yes (Hospitalization, Other)
  Sender: FDA-Public Use
  Company Number: NL-PFIZER INC-2018428157

PATIENT
  Age: 54 Year
  Sex: Male

DRUGS (6)
  1. HERCEPTIN [Suspect]
     Active Substance: TRASTUZUMAB
     Indication: SALIVARY GLAND CANCER
     Dosage: UNK
     Route: 065
     Dates: start: 20170315
  2. DENOSUMAB [Concomitant]
     Active Substance: DENOSUMAB
     Dosage: UNK
  3. CASODEX [Concomitant]
     Active Substance: BICALUTAMIDE
     Dosage: 150 MG, 1X/DAY
     Route: 065
     Dates: start: 20160530
  4. DOCETAXEL. [Suspect]
     Active Substance: DOCETAXEL
     Indication: SALIVARY GLAND CANCER
     Dosage: UNK
     Route: 065
     Dates: start: 20170315
  5. PERJETA [Suspect]
     Active Substance: PERTUZUMAB
     Indication: SALIVARY GLAND CANCER
     Dosage: UNK
     Route: 065
     Dates: start: 20170315
  6. TAMOXIFEN [Concomitant]
     Active Substance: TAMOXIFEN
     Dosage: 10 MG, 1X/DAY
     Route: 065
     Dates: start: 20160530

REACTIONS (5)
  - Pneumonia [Recovered/Resolved]
  - Dyspnoea [Recovered/Resolved]
  - Ejection fraction decreased [Recovered/Resolved]
  - Cardiac failure [Recovered/Resolved]
  - Intentional product use issue [Unknown]

NARRATIVE: CASE EVENT DATE: 20171005
